FAERS Safety Report 19845570 (Version 1)
Quarter: 2021Q3

REPORT INFORMATION
  Report Type: Spontaneous
  Country: US (occurrence: US)
  Receive Date: 20210917
  Receipt Date: 20210917
  Transmission Date: 20211014
  Serious: No
  Sender: FDA-Public Use
  Company Number: None

PATIENT
  Age: 38 Year
  Sex: Male

DRUGS (3)
  1. LISINOPRIL. [Concomitant]
     Active Substance: LISINOPRIL
  2. METHIMAZOLE. [Concomitant]
     Active Substance: METHIMAZOLE
  3. REGEN?COV [Suspect]
     Active Substance: CASIRIVIMAB\IMDEVIMAB
     Indication: COVID-19
     Dates: start: 20210916, end: 20210916

REACTIONS (3)
  - Hypotension [None]
  - Presyncope [None]
  - Infusion related reaction [None]

NARRATIVE: CASE EVENT DATE: 20210916
